FAERS Safety Report 14806297 (Version 2)
Quarter: 2018Q2

REPORT INFORMATION
  Report Type: Spontaneous
  Country: FR (occurrence: FR)
  Receive Date: 20180425
  Receipt Date: 20180515
  Transmission Date: 20180711
  Serious: Yes (Life-Threatening)
  Sender: FDA-Public Use
  Company Number: FR-PFIZER INC-2018168840

PATIENT
  Age: 14 Year
  Sex: Female

DRUGS (3)
  1. PARACETAMOL [Suspect]
     Active Substance: ACETAMINOPHEN
     Indication: TOXICITY TO VARIOUS AGENTS
     Dosage: 8 G, SINGLE, 8 TABLETS
     Route: 048
     Dates: start: 20180102, end: 20180102
  2. DAFALGAN CODEINE [Suspect]
     Active Substance: ACETAMINOPHEN\CODEINE PHOSPHATE
     Indication: TOXICITY TO VARIOUS AGENTS
     Dosage: 8 DF, SINGLE, 8 TABLETS
     Route: 048
     Dates: start: 20180102, end: 20180102
  3. ADVIL [Suspect]
     Active Substance: IBUPROFEN
     Dosage: 2800 MG, SINGLE, 7 TABLETS
     Route: 048
     Dates: start: 20180102, end: 20180102

REACTIONS (1)
  - Coma [Recovered/Resolved]

NARRATIVE: CASE EVENT DATE: 20180102
